FAERS Safety Report 9112900 (Version 1)
Quarter: 2013Q1

REPORT INFORMATION
  Report Type: Spontaneous
  Country: US (occurrence: US)
  Receive Date: 20130211
  Receipt Date: 20130211
  Transmission Date: 20140127
  Serious: Yes (Other)
  Sender: FDA-Public Use
  Company Number: US-PFIZER INC-2013051666

PATIENT
  Age: 65 Year
  Sex: Female
  Weight: 61.68 kg

DRUGS (4)
  1. LYRICA [Suspect]
     Indication: MULTIPLE SCLEROSIS
     Dosage: 75 MG, 2X/DAY
     Dates: start: 2008
  2. LYRICA [Interacting]
     Indication: MUSCLE SPASTICITY
  3. LYRICA [Interacting]
     Indication: NEURALGIA
  4. AMBIEN [Concomitant]
     Indication: SLEEP DISORDER
     Dosage: 5 MG, 1X/DAY

REACTIONS (3)
  - Urinary tract infection [Unknown]
  - Drug interaction [Unknown]
  - Drug ineffective [Unknown]
